FAERS Safety Report 21752163 (Version 1)
Quarter: 2022Q4

REPORT INFORMATION
  Report Type: Spontaneous
  Country: FR (occurrence: FR)
  Receive Date: 20221220
  Receipt Date: 20221220
  Transmission Date: 20230113
  Serious: Yes (Other)
  Sender: FDA-Public Use
  Company Number: FR-ALKEM LABORATORIES LIMITED-FR-ALKEM-2022-14186

PATIENT
  Age: 1 Month
  Sex: Female
  Weight: 2.16 kg

DRUGS (4)
  1. SIROLIMUS [Suspect]
     Active Substance: SIROLIMUS
     Indication: Hyperinsulinism
     Dosage: UNK, INITIAL DOSE OF 0.5-1 MG/SQ.M OF BODY SURFACE AREA PER DAY), SYRUP IN A CONCENTRATION OF 1 MG/M
     Route: 065
  2. SIROLIMUS [Suspect]
     Active Substance: SIROLIMUS
     Dosage: 1.4 MILLIGRAM/SQ. METER, QD (MAXIMAL DOSAGE) TROUGH LEVEL- 7-19 MICROG/L
     Route: 065
  3. OCTREOTIDE [Concomitant]
     Active Substance: OCTREOTIDE
     Indication: Hyperinsulinism
     Dosage: 20 MICROGRAM/KILOGRAM, QD
     Route: 065
  4. DEXTROSE [Concomitant]
     Active Substance: DEXTROSE
     Indication: Hyperinsulinism
     Dosage: 16.7 MILLIGRAM/KILOGRAM PER MIN
     Route: 042

REACTIONS (4)
  - Neutropenia [Unknown]
  - Pancreatic failure [Unknown]
  - Gastrointestinal motility disorder [Unknown]
  - Off label use [Unknown]
